FAERS Safety Report 9270301 (Version 1)
Quarter: 2013Q2

REPORT INFORMATION
  Report Type: Spontaneous
  Country: AT (occurrence: AT)
  Receive Date: 20130503
  Receipt Date: 20130503
  Transmission Date: 20140414
  Serious: Yes (Death)
  Sender: FDA-Public Use
  Company Number: AT-GENZYME-POMP-1002961

PATIENT
  Age: 0 Year
  Sex: Female

DRUGS (1)
  1. MYOZYME [Suspect]
     Indication: GLYCOGEN STORAGE DISEASE TYPE II
     Dosage: 20 MG/KG, UNK
     Route: 042
     Dates: end: 20130321

REACTIONS (1)
  - Cardiopulmonary failure [Fatal]
